FAERS Safety Report 5192470-9 (Version None)
Quarter: 2006Q4

REPORT INFORMATION
  Report Type: 
  Country: None (occurrence: None)
  Receive Date: 20061220
  Receipt Date: 20061204
  Transmission Date: 20070319
  Serious: Yes (Death)
  Sender: FDA-Public Use
  Company Number: 2006002280

PATIENT
  Age: 63 Year
  Sex: Male
  Weight: 79 kg

DRUGS (10)
  1. ERLOTINIB (TABLET) [Suspect]
     Indication: NON-SMALL CELL LUNG CANCER
     Dosage: 1500 MG (QD), ORAL
     Route: 048
     Dates: start: 20061110
  2. PACLITAXEL [Suspect]
     Indication: NON-SMALL CELL LUNG CANCER
     Dosage: 200 MG, INTRAVENOUS
     Route: 042
     Dates: start: 20061109
  3. CARBOPLATIN [Suspect]
     Indication: NON-SMALL CELL LUNG CANCER
     Dosage: 6 AUC, INTRAVENOUS
     Route: 042
     Dates: start: 20061109
  4. ADVAIR (FLUTICASONE PROPIONATE) [Concomitant]
  5. SPIRIVA [Concomitant]
  6. BENICAR [Concomitant]
  7. PREVPAC (PREVPAC) [Concomitant]
  8. CARAFATE [Concomitant]
  9. NYSTATIN [Concomitant]
  10. ALBUTEROL [Concomitant]

REACTIONS (3)
  - DECREASED APPETITE [None]
  - FATIGUE [None]
  - SUDDEN DEATH [None]
